FAERS Safety Report 23609277 (Version 2)
Quarter: 2024Q1

REPORT INFORMATION
  Report Type: Spontaneous
  Country: US (occurrence: US)
  Receive Date: 20240308
  Receipt Date: 20240316
  Transmission Date: 20240410
  Serious: No
  Sender: FDA-Public Use
  Company Number: US-AMGEN-USASP2024046871

PATIENT
  Sex: Female

DRUGS (14)
  1. REPATHA [Suspect]
     Active Substance: EVOLOCUMAB
     Indication: Product used for unknown indication
     Dosage: UNK
     Route: 065
  2. REPATHA [Suspect]
     Active Substance: EVOLOCUMAB
     Route: 065
  3. REPATHA [Suspect]
     Active Substance: EVOLOCUMAB
     Route: 065
  4. REPATHA [Suspect]
     Active Substance: EVOLOCUMAB
     Route: 065
  5. REPATHA [Suspect]
     Active Substance: EVOLOCUMAB
     Route: 065
  6. REPATHA [Suspect]
     Active Substance: EVOLOCUMAB
     Route: 065
  7. REPATHA [Suspect]
     Active Substance: EVOLOCUMAB
     Route: 065
  8. REPATHA [Suspect]
     Active Substance: EVOLOCUMAB
     Route: 065
  9. REPATHA [Suspect]
     Active Substance: EVOLOCUMAB
     Route: 065
  10. REPATHA [Suspect]
     Active Substance: EVOLOCUMAB
     Route: 065
  11. REPATHA [Suspect]
     Active Substance: EVOLOCUMAB
     Route: 065
  12. REPATHA [Suspect]
     Active Substance: EVOLOCUMAB
     Route: 065
  13. REPATHA [Suspect]
     Active Substance: EVOLOCUMAB
     Route: 065
  14. REPATHA [Suspect]
     Active Substance: EVOLOCUMAB
     Route: 065

REACTIONS (2)
  - Incorrect disposal of product [Unknown]
  - Drug dose omission by device [Unknown]
